FAERS Safety Report 25118398 (Version 1)
Quarter: 2025Q1

REPORT INFORMATION
  Report Type: Report from Study
  Country: US (occurrence: US)
  Receive Date: 20250325
  Receipt Date: 20250325
  Transmission Date: 20250408
  Serious: Yes (Other)
  Sender: TAKEDA
  Company Number: US-TAKEDA-2022TUS095528

PATIENT
  Sex: Female
  Weight: 64.853 kg

DRUGS (32)
  1. HUMAN IMMUNOGLOBULIN G [Suspect]
     Active Substance: HUMAN IMMUNOGLOBULIN G
     Indication: Immunodeficiency common variable
     Dosage: 26 GRAM, Q4WEEKS
     Dates: start: 20221130
  2. ACETAMINOPHEN [Concomitant]
     Active Substance: ACETAMINOPHEN
  3. DIPHENHYDRAMINE [Concomitant]
     Active Substance: DIPHENHYDRAMINE
  4. HEPARIN [Concomitant]
     Active Substance: HEPARIN SODIUM
  5. LIDOCAINE [Concomitant]
     Active Substance: LIDOCAINE
  6. SODIUM CHLORIDE [Concomitant]
     Active Substance: SODIUM CHLORIDE
  7. EPINEPHRINE [Concomitant]
     Active Substance: EPINEPHRINE
  8. LISINOPRIL [Concomitant]
     Active Substance: LISINOPRIL
  9. CETIRIZINE HCL [Concomitant]
     Active Substance: CETIRIZINE HYDROCHLORIDE
  10. ESCITALOPRAM OXALATE [Concomitant]
     Active Substance: ESCITALOPRAM OXALATE
  11. VITAMIN D3 [Concomitant]
     Active Substance: CHOLECALCIFEROL
  12. PRASTERONE [Concomitant]
     Active Substance: PRASTERONE
  13. FISH OIL [Concomitant]
     Active Substance: FISH OIL
  14. BORON [Concomitant]
     Active Substance: BORON
  15. Ostera [Concomitant]
  16. ESTRIOL [Concomitant]
     Active Substance: ESTRIOL
  17. Calcium citrate malate with d3 [Concomitant]
  18. FERROUS SULFATE [Concomitant]
     Active Substance: FERROUS SULFATE
  19. MELATONIN [Concomitant]
     Active Substance: MELATONIN
  20. Adrecort [Concomitant]
  21. Choleast [Concomitant]
  22. Potassium orotate [Concomitant]
  23. DIPHENHYDRAMINE HYDROCHLORIDE [Concomitant]
     Active Substance: DIPHENHYDRAMINE HYDROCHLORIDE
  24. COPPER [Concomitant]
     Active Substance: COPPER
  25. ZINC [Concomitant]
     Active Substance: ZINC
  26. PROGESTERONE [Concomitant]
     Active Substance: PROGESTERONE
  27. OXYBUTYNIN CHLORIDE [Concomitant]
     Active Substance: OXYBUTYNIN CHLORIDE
  28. ESCITALOPRAM [Concomitant]
     Active Substance: ESCITALOPRAM OXALATE
  29. SELENIUM [Concomitant]
     Active Substance: SELENIUM
  30. AMOXICILLIN AND CLAVULANATE POTASSIUM [Concomitant]
     Active Substance: AMOXICILLIN\CLAVULANATE POTASSIUM
  31. HYDROCHLOROTHIAZIDE [Concomitant]
     Active Substance: HYDROCHLOROTHIAZIDE
  32. SOLIFENACIN SUCCINATE [Concomitant]
     Active Substance: SOLIFENACIN SUCCINATE

REACTIONS (10)
  - Breast cancer [Unknown]
  - Blood copper decreased [Unknown]
  - Blood zinc decreased [Unknown]
  - Urinary tract infection [Unknown]
  - Fall [Unknown]
  - COVID-19 [Unknown]
  - Bone contusion [Unknown]
  - Sinusitis [Unknown]
  - Contusion [Unknown]
  - Headache [Unknown]
